FAERS Safety Report 19880486 (Version 4)
Quarter: 2022Q1

REPORT INFORMATION
  Report Type: Report from Study
  Country: US (occurrence: US)
  Receive Date: 20210924
  Receipt Date: 20220114
  Transmission Date: 20220424
  Serious: No
  Sender: FDA-Public Use
  Company Number: US-NOVARTISTESTPH-NVSC2021US216832

PATIENT
  Sex: Male

DRUGS (1)
  1. COSENTYX [Suspect]
     Active Substance: SECUKINUMAB
     Indication: Psoriatic arthropathy
     Dosage: 150 MG, UNKNOWN
     Route: 058

REACTIONS (5)
  - Rash [Unknown]
  - Pain in extremity [Unknown]
  - Pain [Unknown]
  - Pruritus [Unknown]
  - Drug ineffective [Not Recovered/Not Resolved]
